FAERS Safety Report 19796897 (Version 1)
Quarter: 2021Q3

REPORT INFORMATION
  Report Type: Spontaneous
  Country: US (occurrence: US)
  Receive Date: 20210906
  Receipt Date: 20210906
  Transmission Date: 20211014
  Serious: No
  Sender: FDA-Public Use
  Company Number: US-JNJFOC-20210860080

PATIENT
  Age: 68 Year
  Sex: Female

DRUGS (1)
  1. IMODIUM A?D [Suspect]
     Active Substance: LOPERAMIDE HYDROCHLORIDE
     Indication: DIARRHOEA
     Dosage: 2 GEL CAPS DAILY, AND NO MORE THAN 4 IN 24 HOURS
     Route: 065
     Dates: start: 20210823

REACTIONS (2)
  - Abdominal pain upper [Not Recovered/Not Resolved]
  - Overflow diarrhoea [Not Recovered/Not Resolved]

NARRATIVE: CASE EVENT DATE: 20210826
